FAERS Safety Report 16728188 (Version 2)
Quarter: 2019Q3

REPORT INFORMATION
  Report Type: Report from Study
  Country: GB (occurrence: GB)
  Receive Date: 20190822
  Receipt Date: 20190823
  Transmission Date: 20191005
  Serious: Yes (Other)
  Sender: FDA-Public Use
  Company Number: GB-SAMSUNG BIOEPIS-SB-2019-07128

PATIENT
  Age: 49 Year
  Sex: Female

DRUGS (1)
  1. IMRALDI [Suspect]
     Active Substance: ADALIMUMAB
     Indication: PSORIATIC ARTHROPATHY
     Route: 058
     Dates: start: 20190116

REACTIONS (14)
  - Vertigo [Not Recovered/Not Resolved]
  - Pain of skin [Not Recovered/Not Resolved]
  - Sinusitis [Unknown]
  - Fatigue [Not Recovered/Not Resolved]
  - Ear pain [Unknown]
  - Lower respiratory tract infection [Unknown]
  - Pain [Not Recovered/Not Resolved]
  - Vulvovaginal candidiasis [Unknown]
  - Dry throat [Unknown]
  - Adverse drug reaction [Not Recovered/Not Resolved]
  - Dizziness [Not Recovered/Not Resolved]
  - Hemiparesis [Not Recovered/Not Resolved]
  - Eye pain [Recovering/Resolving]
  - Vision blurred [Not Recovered/Not Resolved]

NARRATIVE: CASE EVENT DATE: 20190313
